FAERS Safety Report 9155164 (Version 2)
Quarter: 2013Q2

REPORT INFORMATION
  Report Type: Report from Study
  Country: US (occurrence: US)
  Receive Date: 20130311
  Receipt Date: 20130401
  Transmission Date: 20140414
  Serious: Yes (Hospitalization, Other)
  Sender: FDA-Public Use
  Company Number: US-ROCHE-1197935

PATIENT
  Age: 65 Year
  Sex: Female
  Weight: 77.63 kg

DRUGS (10)
  1. TOCILIZUMAB [Suspect]
     Indication: RHEUMATOID ARTHRITIS
     Route: 042
     Dates: start: 20120117
  2. TOCILIZUMAB [Suspect]
     Route: 042
     Dates: start: 20120925
  3. TOCILIZUMAB [Suspect]
     Route: 042
     Dates: start: 20121023
  4. TOCILIZUMAB [Suspect]
     Route: 042
     Dates: start: 20121120, end: 20121120
  5. MELOXICAM [Concomitant]
     Route: 048
  6. PREDNISONE [Concomitant]
     Route: 048
  7. OMEPRAZOLE [Concomitant]
     Route: 048
  8. CIPRO [Concomitant]
     Route: 048
     Dates: start: 20121219
  9. FLAGYL [Concomitant]
     Route: 048
     Dates: start: 20121219
  10. CIMZIA [Concomitant]

REACTIONS (2)
  - Colonic abscess [Recovered/Resolved]
  - Intestinal resection [Unknown]
